FAERS Safety Report 5201093-4 (Version None)
Quarter: 2007Q1

REPORT INFORMATION
  Report Type: 
  Country: None (occurrence: None)
  Receive Date: 20070103
  Receipt Date: 20061218
  Transmission Date: 20070707
  Serious: Yes (Life-Threatening, Hospitalization)
  Sender: FDA-Public Use
  Company Number: 232995

PATIENT
  Age: 45 Year
  Sex: Female
  Weight: 73 kg

DRUGS (4)
  1. AVASTIN [Suspect]
     Indication: RECTAL CANCER
     Dosage: 330 MG, INTRAVENOUS
     Route: 042
     Dates: start: 20061015
  2. FLUOROURACIL [Suspect]
     Indication: RECTAL CANCER
     Dates: start: 20061015
  3. LEUCOVORIN CALCIUM [Suspect]
     Indication: RECTAL CANCER
     Dates: start: 20061015
  4. IRINOTECAN (IRETINOTECAN HYDROCHLORIDE) [Suspect]
     Indication: RECTAL CANCER
     Dates: start: 20061015

REACTIONS (6)
  - ABSCESS [None]
  - INFECTION [None]
  - LIVER FUNCTION TEST ABNORMAL [None]
  - MALIGNANT NEOPLASM PROGRESSION [None]
  - RECTAL CANCER [None]
  - TUMOUR NECROSIS [None]
